FAERS Safety Report 8459021 (Version 3)
Quarter: 2013Q2

REPORT INFORMATION
  Report Type: Spontaneous
  Country: US (occurrence: US)
  Receive Date: 20120314
  Receipt Date: 20130430
  Transmission Date: 20140414
  Serious: Yes (Other)
  Sender: FDA-Public Use
  Company Number: US-BAYER-2012-023574

PATIENT
  Age: 51 Year
  Sex: Female
  Weight: 57 kg

DRUGS (9)
  1. YAZ [Suspect]
     Indication: HAEMORRHAGIC DIATHESIS
     Dosage: UNK
  2. YASMIN [Suspect]
     Dosage: UNK
  3. AYGESTIN [Concomitant]
     Indication: MENORRHAGIA
     Dosage: UNK
  4. PROTONIX [Concomitant]
  5. BENICAR [Concomitant]
  6. ZYRTEC [Concomitant]
  7. CALCIUM [Concomitant]
  8. DOXYCYCLINE [Concomitant]
     Dosage: 100 MG, UNK
     Route: 048
  9. PREDNISONE [Concomitant]
     Dosage: UNK
     Route: 048
     Dates: start: 20110620

REACTIONS (9)
  - Pulmonary embolism [None]
  - Deep vein thrombosis [None]
  - Pain [None]
  - Injury [None]
  - Quality of life decreased [None]
  - Emotional distress [None]
  - Anxiety [None]
  - Anhedonia [None]
  - Fear [None]
